FAERS Safety Report 21996393 (Version 3)
Quarter: 2023Q2

REPORT INFORMATION
  Report Type: Spontaneous
  Country: US (occurrence: US)
  Receive Date: 20230215
  Receipt Date: 20230524
  Transmission Date: 20230721
  Serious: No
  Sender: FDA-Public Use
  Company Number: US-PFIZER INC-PV202300029632

PATIENT
  Age: 70 Year
  Sex: Female
  Weight: 72.57 kg

DRUGS (2)
  1. IBRANCE [Suspect]
     Active Substance: PALBOCICLIB
     Indication: Breast cancer metastatic
     Dosage: TAKE 1 TABLET DAILY, FOR 21 CONSECUTIVE DAYS, FOLLOWED BY 7 DAYS OFF TREATMENT OF A 28 DAY CYCLE
     Route: 048
     Dates: start: 20211223, end: 20230307
  2. LETROZOLE [Concomitant]
     Active Substance: LETROZOLE
     Indication: Neoplasm malignant
     Dosage: UNK
     Route: 048
     Dates: start: 20211223

REACTIONS (1)
  - Neoplasm progression [Unknown]
